FAERS Safety Report 5904837-9 (Version None)
Quarter: 2008Q4

REPORT INFORMATION
  Report Type: 
  Country: None (occurrence: None)
  Receive Date: 20081001
  Receipt Date: 20080925
  Transmission Date: 20090506
  Serious: Yes (Hospitalization)
  Sender: FDA-Public Use
  Company Number: DE-ABBOTT-08P-062-0478572-00

PATIENT

DRUGS (2)
  1. HUMIRA [Suspect]
     Indication: JUVENILE ARTHRITIS
     Route: 058
     Dates: start: 20080801
  2. ETANERCEPT [Suspect]
     Indication: JUVENILE ARTHRITIS
     Route: 058
     Dates: end: 20080701

REACTIONS (5)
  - ANTINUCLEAR ANTIBODY POSITIVE [None]
  - BLOOD CREATININE INCREASED [None]
  - C-REACTIVE PROTEIN INCREASED [None]
  - HAEMATURIA [None]
  - MYOCARDITIS [None]
